FAERS Safety Report 6132566-8 (Version None)
Quarter: 2009Q1

REPORT INFORMATION
  Report Type: 
  Country: None (occurrence: None)
  Receive Date: 20090324
  Receipt Date: 20090304
  Transmission Date: 20090719
  Serious: Yes (Death)
  Sender: FDA-Public Use
  Company Number: 122653

PATIENT
  Age: 64 Year
  Sex: Female

DRUGS (13)
  1. VINCRISTINE SULFATE [Suspect]
     Indication: DIFFUSE LARGE B-CELL LYMPHOMA
     Dates: start: 20080301, end: 20080501
  2. DOXORUBICIN HCL [Suspect]
     Indication: DIFFUSE LARGE B-CELL LYMPHOMA
     Dates: start: 20080301, end: 20080501
  3. METHOTREXATE [Suspect]
     Indication: NON-HODGKIN'S LYMPHOMA
     Dosage: 12.5 MG, INTRATRACHEAL
     Route: 039
     Dates: end: 20080301
  4. CYCLOPHOSPHAMIDE [Suspect]
     Indication: DIFFUSE LARGE B-CELL LYMPHOMA
     Dates: start: 20080301, end: 20080501
  5. PREDNISONE [Suspect]
     Indication: DIFFUSE LARGE B-CELL LYMPHOMA
     Dates: start: 20080301, end: 20080501
  6. RITUXIMAB [Suspect]
     Indication: DIFFUSE LARGE B-CELL LYMPHOMA
     Dates: start: 20050301, end: 20080501
  7. AMLODIPINE [Concomitant]
  8. FLUCONAZOLE [Concomitant]
  9. CALCIUM FOLINATE [Concomitant]
  10. GANCICLOVIR [Concomitant]
  11. LANSOPRAZOLE [Concomitant]
  12. SIMVASTATIN [Concomitant]
  13. SULFAMETHOXAZOLE AND TRIMETHOPRIM [Concomitant]

REACTIONS (5)
  - AMNESIA [None]
  - APRAXIA [None]
  - ATAXIA [None]
  - CENTRAL NERVOUS SYSTEM LYMPHOMA [None]
  - LEUKOENCEPHALOPATHY [None]
